FAERS Safety Report 8397045-6 (Version None)
Quarter: 2012Q2

REPORT INFORMATION
  Report Type: 
  Country: None (occurrence: None)
  Receive Date: 20120530
  Receipt Date: 20120522
  Transmission Date: 20120825
  Serious: Yes (Other)
  Sender: FDA-Public Use
  Company Number: US-ABBOTT-10P-163-0671899-00

PATIENT
  Sex: Male
  Weight: 115.77 kg

DRUGS (5)
  1. AZATHIOPRINE [Concomitant]
     Indication: CROHN'S DISEASE
     Dates: end: 20120301
  2. LIALDA [Concomitant]
  3. PREVACID [Concomitant]
     Indication: PRODUCT USED FOR UNKNOWN INDICATION
  4. HUMIRA [Suspect]
     Indication: CROHN'S DISEASE
     Route: 058
     Dates: start: 20090301
  5. LIALDA [Concomitant]
     Indication: CROHN'S DISEASE
     Dates: end: 20120301

REACTIONS (11)
  - LUNG NEOPLASM MALIGNANT [None]
  - ATRIAL FIBRILLATION [None]
  - NASOPHARYNGITIS [None]
  - RESPIRATORY TRACT CONGESTION [None]
  - LUNG DISORDER [None]
  - CROHN'S DISEASE [None]
  - DIARRHOEA [None]
  - SINUSITIS [None]
  - RHINORRHOEA [None]
  - COUGH [None]
  - RECTAL HAEMORRHAGE [None]
